FAERS Safety Report 8590208-6 (Version None)
Quarter: 2012Q3

REPORT INFORMATION
  Report Type: 
  Country: None (occurrence: None)
  Receive Date: 20120813
  Receipt Date: 20120802
  Transmission Date: 20120928
  Serious: Yes (Hospitalization, Other)
  Sender: FDA-Public Use
  Company Number: US-MERCK-1111USA02486

PATIENT

DRUGS (1)
  1. FOSAMAX [Suspect]
     Dosage: UNK
     Route: 048
     Dates: start: 20040601, end: 20070101

REACTIONS (3)
  - OSTEONECROSIS OF JAW [None]
  - FEMUR FRACTURE [None]
  - LOOSE TOOTH [None]
